FAERS Safety Report 9402994 (Version 2)
Quarter: 2013Q3

REPORT INFORMATION
  Report Type: Report from Study
  Country: AU (occurrence: AU)
  Receive Date: 20130716
  Receipt Date: 20130802
  Transmission Date: 20140515
  Serious: Yes (Other)
  Sender: FDA-Public Use
  Company Number: AU-VERTEX PHARMACEUTICALS INC-2013-007725

PATIENT
  Age: 25 Year
  Sex: Female

DRUGS (17)
  1. VX-770 [Suspect]
     Indication: CYSTIC FIBROSIS
     Dosage: 150 MG, BID
     Route: 048
     Dates: start: 20120504, end: 20121024
  2. VX-770 [Suspect]
     Dosage: 150 MG, BID
     Route: 048
     Dates: start: 20130115
  3. OTHER BETA-LACTAM ANTIBACTERIALS [Suspect]
  4. AZTREONAM [Concomitant]
     Route: 042
  5. CEFTAZIDIME [Concomitant]
     Route: 042
  6. TOBRAMYCIN [Concomitant]
     Route: 042
  7. AZITHROMYCIN [Concomitant]
  8. TRANEXAMIC ACID [Concomitant]
  9. DOMPERIDONE [Concomitant]
  10. CREON [Concomitant]
  11. PANTOPRAZOLE [Concomitant]
  12. MIRTAZAPINE [Concomitant]
  13. BECLOMETHASONE DIPROPIONATE [Concomitant]
     Route: 045
  14. PARACETAMOL [Concomitant]
  15. CALCIUM CARBONATE [Concomitant]
  16. PHYTOMENADIONE [Concomitant]
  17. ABDEC [Concomitant]

REACTIONS (1)
  - Liver function test abnormal [Recovered/Resolved]
